FAERS Safety Report 8526603 (Version 40)
Quarter: 2020Q1

REPORT INFORMATION
  Report Type: Report from Study
  Country: CA (occurrence: CA)
  Receive Date: 20120423
  Receipt Date: 20200312
  Transmission Date: 20200409
  Serious: Yes (Other)
  Sender: FDA-Public Use
  Company Number: CA-ROCHE-1001272

PATIENT
  Age: 57 Year
  Sex: Female
  Weight: 91 kg

DRUGS (10)
  1. ACTEMRA [Suspect]
     Active Substance: TOCILIZUMAB
     Route: 042
     Dates: start: 20140702
  2. NAPROXEN. [Concomitant]
     Active Substance: NAPROXEN
  3. ACTEMRA [Suspect]
     Active Substance: TOCILIZUMAB
     Indication: RHEUMATOID ARTHRITIS
     Route: 042
     Dates: start: 20110705
  4. ACTEMRA [Suspect]
     Active Substance: TOCILIZUMAB
     Route: 042
     Dates: start: 20140731
  5. PREDNISONE. [Concomitant]
     Active Substance: PREDNISONE
  6. ACTEMRA [Suspect]
     Active Substance: TOCILIZUMAB
     Route: 042
     Dates: start: 20180523
  7. ACTEMRA [Suspect]
     Active Substance: TOCILIZUMAB
     Dosage: ONGOING
     Route: 042
     Dates: start: 20150716
  8. RITUXAN [Suspect]
     Active Substance: RITUXIMAB
     Indication: PRODUCT USED FOR UNKNOWN INDICATION
     Route: 065
     Dates: start: 20100601
  9. AMLODIPINE [Concomitant]
     Active Substance: AMLODIPINE BESYLATE
     Indication: HYPERTENSION
  10. SYNTHROID [Concomitant]
     Active Substance: LEVOTHYROXINE SODIUM

REACTIONS (30)
  - Ear infection [Not Recovered/Not Resolved]
  - Arthralgia [Recovering/Resolving]
  - Infusion related reaction [Unknown]
  - Oligomenorrhoea [Unknown]
  - Bronchitis [Unknown]
  - Oedema peripheral [Recovering/Resolving]
  - Blood pressure increased [Unknown]
  - Acne [Unknown]
  - Deafness unilateral [Not Recovered/Not Resolved]
  - Basal cell carcinoma [Unknown]
  - Pyrexia [Recovered/Resolved]
  - Joint injury [Unknown]
  - Stomatitis [Recovered/Resolved]
  - Blood test abnormal [Unknown]
  - Hyperhidrosis [Not Recovered/Not Resolved]
  - Headache [Recovered/Resolved]
  - Productive cough [Not Recovered/Not Resolved]
  - Lower respiratory tract congestion [Unknown]
  - Dyspnoea [Unknown]
  - Uterine polyp [Recovered/Resolved]
  - Pneumonia [Unknown]
  - Chills [Not Recovered/Not Resolved]
  - Oxygen saturation decreased [Unknown]
  - Nasopharyngitis [Not Recovered/Not Resolved]
  - Arthropathy [Unknown]
  - Weight increased [Unknown]
  - Respiratory tract infection [Recovered/Resolved]
  - Blood pressure systolic increased [Unknown]
  - Nasal congestion [Unknown]
  - Sputum discoloured [Not Recovered/Not Resolved]

NARRATIVE: CASE EVENT DATE: 201108
